FAERS Safety Report 6761835-3 (Version None)
Quarter: 2010Q2

REPORT INFORMATION
  Report Type: 
  Country: None (occurrence: None)
  Receive Date: 20100427
  Receipt Date: 20100422
  Transmission Date: 20101027
  Serious: Yes (Other)
  Sender: FDA-Public Use
  Company Number: 2010022514

PATIENT
  Sex: Female
  Weight: 55.3388 kg

DRUGS (6)
  1. VIVAGLOBIN [Suspect]
     Indication: BLOOD IMMUNOGLOBULIN G DECREASED
     Dosage: SEE IMAGE, SUBCUTANEOUS
     Route: 058
     Dates: start: 20100408, end: 20100408
  2. VIVAGLOBIN [Suspect]
     Indication: BLOOD IMMUNOGLOBULIN G DECREASED
     Dosage: SEE IMAGE, SUBCUTANEOUS
     Route: 058
     Dates: start: 20100408, end: 20100408
  3. VIVAGLOBIN [Suspect]
     Indication: BLOOD IMMUNOGLOBULIN G DECREASED
     Dosage: SEE IMAGE, SUBCUTANEOUS
     Route: 058
     Dates: start: 20100415, end: 20100415
  4. VIVAGLOBIN [Suspect]
     Indication: BLOOD IMMUNOGLOBULIN G DECREASED
     Dosage: SEE IMAGE, SUBCUTANEOUS
     Route: 058
     Dates: start: 20100415, end: 20100415
  5. VIVAGLOBIN [Suspect]
     Indication: BLOOD IMMUNOGLOBULIN G DECREASED
     Dosage: SEE IMAGE, SUBCUTANEOUS
     Route: 058
     Dates: start: 20080814
  6. VIVAGLOBIN [Suspect]

REACTIONS (10)
  - ALANINE AMINOTRANSFERASE INCREASED [None]
  - ASPARTATE AMINOTRANSFERASE INCREASED [None]
  - HEPATITIS B E ANTIGEN POSITIVE [None]
  - INFUSION SITE ERYTHEMA [None]
  - INFUSION SITE PRURITUS [None]
  - INFUSION SITE REACTION [None]
  - INFUSION SITE SWELLING [None]
  - INFUSION SITE WARMTH [None]
  - SERUM FERRITIN INCREASED [None]
  - WHITE BLOOD CELL COUNT DECREASED [None]
